FAERS Safety Report 24020312 (Version 2)
Quarter: 2024Q3

REPORT INFORMATION
  Report Type: Spontaneous
  Country: CA (occurrence: CA)
  Receive Date: 20240627
  Receipt Date: 20240725
  Transmission Date: 20241017
  Serious: Yes (Other)
  Sender: SANDOZ
  Company Number: CA-SANDOZ-SDZ2024CA057467

PATIENT
  Sex: Female

DRUGS (2)
  1. HYRIMOZ [Suspect]
     Active Substance: ADALIMUMAB-ADAZ
     Indication: Crohn^s disease
     Dosage: 40 MG, Q2W,40 MG / 0.8 ML
     Route: 058
     Dates: start: 20240513
  2. HYRIMOZ [Suspect]
     Active Substance: ADALIMUMAB-ADAZ
     Dosage: WEEK 0 160MG, WEEK 2 80 MG, THE EVERY OTHER WEEK40MG 2QW;EVERY TWO WEEK
     Route: 058
     Dates: start: 20240513

REACTIONS (7)
  - Crohn^s disease [Unknown]
  - Anal fissure [Unknown]
  - Abdominal mass [Unknown]
  - General physical health deterioration [Unknown]
  - Oral pain [Unknown]
  - Arthralgia [Unknown]
  - Oral herpes [Unknown]
